FAERS Safety Report 15302169 (Version 1)
Quarter: 2018Q3

REPORT INFORMATION
  Report Type: Spontaneous
  Country: US (occurrence: US)
  Receive Date: 20180821
  Receipt Date: 20180821
  Transmission Date: 20181010
  Serious: Yes (Hospitalization, Other)
  Sender: FDA-Public Use
  Company Number: US-TARO-2018TAR00071

PATIENT
  Age: 69 Year
  Sex: Male
  Weight: 61.68 kg

DRUGS (4)
  1. WARFARIN SODIUM TABLETS USP 6MG [Suspect]
     Active Substance: WARFARIN SODIUM
     Dosage: 9 MG, 1X/DAY
     Route: 048
     Dates: start: 201801, end: 20180124
  2. UNSPECIFIED STEROID [Suspect]
     Active Substance: UNSPECIFIED INGREDIENT
     Dosage: UNK
  3. CORONARY ARTERY DISEASE MAINTENANCE MEDICATIONS [Concomitant]
     Indication: CORONARY ARTERY DISEASE
  4. WARFARIN SODIUM TABLETS USP 6MG [Suspect]
     Active Substance: WARFARIN SODIUM
     Indication: CARDIAC VENTRICULAR THROMBOSIS
     Dosage: 6 MG, 1X/DAY
     Route: 048
     Dates: start: 201003, end: 201801

REACTIONS (4)
  - Drug ineffective [Recovered/Resolved]
  - Gastrointestinal haemorrhage [Recovered/Resolved]
  - Headache [Recovered/Resolved]
  - Product quality issue [Recovered/Resolved]

NARRATIVE: CASE EVENT DATE: 20170711
